FAERS Safety Report 11046689 (Version 1)
Quarter: 2015Q2

REPORT INFORMATION
  Report Type: Spontaneous
  Country: GB (occurrence: GB)
  Receive Date: 20150420
  Receipt Date: 20150420
  Transmission Date: 20150821
  Serious: Yes (Other)
  Sender: FDA-Public Use
  Company Number: GB-ACCORD-030045

PATIENT
  Age: 62 Year
  Sex: Female

DRUGS (2)
  1. RAMIPRIL. [Suspect]
     Active Substance: RAMIPRIL
     Indication: HYPERTENSION
     Dosage: 2.5MG TO 5MG
     Route: 048
     Dates: start: 20140718, end: 20150317
  2. OMEPRAZOLE. [Concomitant]
     Active Substance: OMEPRAZOLE

REACTIONS (6)
  - Eye pruritus [Recovered/Resolved]
  - Anxiety [Recovered/Resolved]
  - Lacrimation increased [Recovered/Resolved]
  - Palpitations [Recovered/Resolved]
  - Chest pain [Recovered/Resolved]
  - Malaise [Recovered/Resolved]

NARRATIVE: CASE EVENT DATE: 20140718
